FAERS Safety Report 6468247-0 (Version None)
Quarter: 2009Q4

REPORT INFORMATION
  Report Type: 
  Country: None (occurrence: None)
  Receive Date: 20091125
  Receipt Date: 20091113
  Transmission Date: 20100525
  Serious: Yes (Hospitalization)
  Sender: FDA-Public Use
  Company Number: #09-163

PATIENT

DRUGS (1)
  1. GUAIFENESIN AND DEXTROMETHORPHAN HBR [Suspect]
     Indication: CHEST DISCOMFORT
     Dosage: 1 PO Q4H
     Route: 048
     Dates: start: 20090923

REACTIONS (2)
  - HYPERSENSITIVITY [None]
  - SELF-MEDICATION [None]
